FAERS Safety Report 5877474-2 (Version None)
Quarter: 2008Q3

REPORT INFORMATION
  Report Type: 
  Country: None (occurrence: None)
  Receive Date: 20080909
  Receipt Date: 20080904
  Transmission Date: 20090109
  Serious: Yes (Hospitalization, Other)
  Sender: FDA-Public Use
  Company Number: 1000000820

PATIENT
  Age: 49 Year
  Sex: Female

DRUGS (5)
  1. LEXAPRO [Suspect]
     Indication: ANXIETY
     Dosage: 10 MG (1 IN 1 D) PER ORAL; 5 MG, OCCASIONALLY
     Route: 048
     Dates: start: 20060101, end: 20080801
  2. LEXAPRO [Suspect]
     Indication: DEPRESSION
     Dosage: 10 MG (1 IN 1 D) PER ORAL; 5 MG, OCCASIONALLY
     Route: 048
     Dates: start: 20060101, end: 20080801
  3. LEXAPRO [Suspect]
     Indication: ANXIETY
     Dosage: 10 MG (1 IN 1 D) PER ORAL; 5 MG, OCCASIONALLY
     Route: 048
     Dates: start: 20080901
  4. LEXAPRO [Suspect]
     Indication: DEPRESSION
     Dosage: 10 MG (1 IN 1 D) PER ORAL; 5 MG, OCCASIONALLY
     Route: 048
     Dates: start: 20080901
  5. YASMIN [Suspect]

REACTIONS (5)
  - CARDIAC OUTPUT DECREASED [None]
  - DRUG WITHDRAWAL SYNDROME [None]
  - DYSPNOEA [None]
  - HYPOTENSION [None]
  - IRRITABILITY [None]
